FAERS Safety Report 25976010 (Version 2)
Quarter: 2025Q4

REPORT INFORMATION
  Report Type: Spontaneous
  Country: US (occurrence: US)
  Receive Date: 20251029
  Receipt Date: 20251201
  Transmission Date: 20260118
  Serious: No
  Sender: PFIZER
  Company Number: US-PFIZER INC-202500165444

PATIENT
  Age: 21 Year
  Sex: Female

DRUGS (1)
  1. GENOTROPIN [Suspect]
     Active Substance: SOMATROPIN
     Indication: Brain neoplasm malignant
     Dosage: 0.4 MG, DAILY
     Dates: start: 202406

REACTIONS (6)
  - Drug dose omission by device [Unknown]
  - Off label use [Unknown]
  - Device breakage [Unknown]
  - Device information output issue [Unknown]
  - Device physical property issue [Unknown]
  - Device mechanical issue [Unknown]

NARRATIVE: CASE EVENT DATE: 20240601
